FAERS Safety Report 9467843 (Version 1)
Quarter: 2013Q3

REPORT INFORMATION
  Report Type: Spontaneous
  Country: IE (occurrence: IE)
  Receive Date: 20130821
  Receipt Date: 20130821
  Transmission Date: 20140515
  Serious: Yes (Other)
  Sender: FDA-Public Use
  Company Number: IE-ASTRAZENECA-2013SE63305

PATIENT
  Age: 62 Year
  Sex: Male

DRUGS (12)
  1. VIMOVO [Suspect]
     Indication: PAIN
     Dosage: 500+20 MILLIGRAMS TWICE DAILY.
     Route: 048
     Dates: start: 20130601
  2. OMEPRAZOLE [Suspect]
     Route: 048
  3. TARGIN [Concomitant]
     Indication: PAIN
     Dosage: OXYCODONE 20 MG AND NALOXONE 10 MG TWICE DAILY.
  4. DOMPERIDONE [Concomitant]
     Indication: NAUSEA
  5. SALBUTAMOL [Concomitant]
  6. SERETIDE DISKUS [Concomitant]
     Indication: CHRONIC OBSTRUCTIVE PULMONARY DISEASE
     Dosage: 100 MICROGRAMS LABA/ 1 MG STEROID
  7. METFORMIN [Concomitant]
  8. GINGER [Concomitant]
  9. PARACETAMOL [Concomitant]
     Indication: PAIN
  10. SPIRIVA [Concomitant]
  11. CODALAX [Concomitant]
  12. MOVICOL [Concomitant]

REACTIONS (1)
  - Hyponatraemia [Unknown]
